FAERS Safety Report 19803123 (Version 1)
Quarter: 2021Q3

REPORT INFORMATION
  Report Type: Spontaneous
  Country: US (occurrence: US)
  Receive Date: 20210903
  Receipt Date: 20210903
  Transmission Date: 20211014
  Serious: Yes (Hospitalization)
  Sender: FDA-Public Use
  Company Number: None

PATIENT
  Sex: Male

DRUGS (10)
  1. BACTRIM [Concomitant]
     Active Substance: SULFAMETHOXAZOLE\TRIMETHOPRIM
  2. PREDNISONE. [Concomitant]
     Active Substance: PREDNISONE
  3. CYCLOSPORINE. [Suspect]
     Active Substance: CYCLOSPORINE
     Indication: LUNG TRANSPLANT
     Route: 048
     Dates: start: 20140606
  4. NEORAL [Concomitant]
     Active Substance: CYCLOSPORINE
  5. CLOMIPRAMINE [Concomitant]
     Active Substance: CLOMIPRAMINE
  6. MAGNESIUM [Concomitant]
     Active Substance: MAGNESIUM
  7. PROTONIX [Concomitant]
     Active Substance: PANTOPRAZOLE SODIUM
  8. MYCOPHENOLIC [Concomitant]
     Active Substance: MYCOPHENOLIC ACID
  9. VITAMIN D [Concomitant]
     Active Substance: VITAMIN D NOS
  10. BUPROPIN [Concomitant]
     Active Substance: BUPROPION

REACTIONS (1)
  - Cerebrovascular accident [None]
